FAERS Safety Report 5200972-1 (Version None)
Quarter: 2006Q4

REPORT INFORMATION
  Report Type: 
  Country: None (occurrence: None)
  Receive Date: 20061226
  Receipt Date: 20061215
  Transmission Date: 20070319
  Serious: Yes (Life-Threatening)
  Sender: FDA-Public Use
  Company Number: 2006BH015113

PATIENT
  Age: 14 Year
  Sex: Male
  Weight: 43 kg

DRUGS (1)
  1. FEIBA VH IMMUNO [Suspect]
     Indication: HAEMARTHROSIS
     Dosage: 4000 IU; EVERY DAY; IV
     Route: 042
     Dates: start: 20061101

REACTIONS (3)
  - CONDITION AGGRAVATED [None]
  - FACTOR VIII INHIBITION [None]
  - THERAPEUTIC RESPONSE DECREASED [None]
